FAERS Safety Report 4376025-1 (Version None)
Quarter: 2004Q2

REPORT INFORMATION
  Report Type: 
  Country: None (occurrence: None)
  Receive Date: 20040611
  Receipt Date: 20040604
  Transmission Date: 20050107
  Serious: Yes (Other)
  Sender: FDA-Public Use
  Company Number: JP-MERCK-0406USA00851

PATIENT
  Age: 67 Year
  Sex: Male

DRUGS (3)
  1. BROACT [Concomitant]
     Route: 042
     Dates: start: 20040524, end: 20040527
  2. DIAZEPAM [Concomitant]
     Route: 042
     Dates: start: 20040524, end: 20040527
  3. PEPCID [Suspect]
     Route: 048
     Dates: start: 20040524, end: 20040527

REACTIONS (1)
  - RHABDOMYOLYSIS [None]
